FAERS Safety Report 4796511-X (Version None)
Quarter: 2005Q4

REPORT INFORMATION
  Report Type: 
  Country: None (occurrence: None)
  Receive Date: 20051007
  Receipt Date: 20050929
  Transmission Date: 20060501
  Serious: Yes (Death)
  Sender: FDA-Public Use
  Company Number: 032-38

PATIENT
  Sex: Female

DRUGS (2)
  1. TEVETEN [Suspect]
     Indication: HYPERTENSION
  2. FUROSEMIDE [Concomitant]

REACTIONS (1)
  - ENDOMETRIAL CANCER [None]
